FAERS Safety Report 18643098 (Version 2)
Quarter: 2021Q4

REPORT INFORMATION
  Report Type: Report from Study
  Country: MA (occurrence: MA)
  Receive Date: 20201221
  Receipt Date: 20211010
  Transmission Date: 20220303
  Serious: No
  Sender: FDA-Public Use
  Company Number: NVSC2020MA312662

PATIENT
  Sex: Male

DRUGS (2)
  1. COSENTYX [Suspect]
     Active Substance: SECUKINUMAB
     Indication: Psoriatic arthropathy
     Dosage: 300 MG, UNKNOWN
     Route: 058
     Dates: start: 20200701
  2. COSENTYX [Suspect]
     Active Substance: SECUKINUMAB
     Dosage: UNK
     Route: 058
     Dates: start: 202007

REACTIONS (6)
  - Arthralgia [Recovered/Resolved]
  - Condition aggravated [Unknown]
  - Neck pain [Unknown]
  - Back pain [Unknown]
  - Sleep disorder due to a general medical condition [Unknown]
  - Product availability issue [Unknown]
